FAERS Safety Report 13275382 (Version 1)
Quarter: 2017Q1

REPORT INFORMATION
  Report Type: Other
  Country: IN (occurrence: IN)
  Receive Date: 20170228
  Receipt Date: 20170228
  Transmission Date: 20170428
  Serious: Yes (Hospitalization)
  Sender: FDA-Public Use
  Company Number: IN-NOVEL LABORATORIES, INC-2017-00834

PATIENT
  Age: 21 Year
  Sex: Female

DRUGS (1)
  1. MISOPROSTOL. [Suspect]
     Active Substance: MISOPROSTOL
     Indication: HAEMORRHAGE PROPHYLAXIS
     Route: 048

REACTIONS (2)
  - Hyperpyrexia [Recovered/Resolved]
  - Seizure [Recovered/Resolved]
